FAERS Safety Report 4656630-5 (Version None)
Quarter: 2005Q1

REPORT INFORMATION
  Report Type: 
  Country: None (occurrence: None)
  Receive Date: 20050331
  Receipt Date: 20041119
  Transmission Date: 20050727
  Serious: No
  Sender: FDA-Public Use
  Company Number: US100455

PATIENT
  Age: 56 Year
  Sex: Female
  Weight: 166.2 kg

DRUGS (7)
  1. NEULASTA [Suspect]
     Indication: CHEMOTHERAPY
     Dosage: 6 MG, 1 IN 1 DAYS, IV
     Route: 042
     Dates: start: 20041119
  2. POLYETHYLENE GLYCOL [Suspect]
  3. CYCLOPHOSPHAMIDE [Concomitant]
  4. DOXORUBICIN HYDROCHLORIDE [Concomitant]
  5. VINCRISTINE SULFATE [Concomitant]
  6. PREDNISONE [Concomitant]
  7. RITUXIMAB [Concomitant]

REACTIONS (6)
  - CHEST DISCOMFORT [None]
  - DISCOMFORT [None]
  - FLUSHING [None]
  - HYPOTENSION [None]
  - MEDICATION ERROR [None]
  - TACHYCARDIA [None]
